FAERS Safety Report 14332003 (Version 2)
Quarter: 2018Q2

REPORT INFORMATION
  Report Type: Report from Study
  Country: US (occurrence: US)
  Receive Date: 20171228
  Receipt Date: 20180612
  Transmission Date: 20180711
  Serious: Yes (Other)
  Sender: FDA-Public Use
  Company Number: US-JNJFOC-20171234829

PATIENT
  Sex: Female

DRUGS (16)
  1. MILK OF MAGNESIA [Concomitant]
     Active Substance: MAGNESIUM HYDROXIDE
  2. ALBUTEROL. [Concomitant]
     Active Substance: ALBUTEROL
  3. SYNTHROID [Concomitant]
     Active Substance: LEVOTHYROXINE SODIUM
  4. MOTRIN [Concomitant]
     Active Substance: IBUPROFEN
  5. VITAMIN D [Concomitant]
     Active Substance: CHOLECALCIFEROL
  6. TORSEMIDE. [Concomitant]
     Active Substance: TORSEMIDE
  7. MELATONIN [Concomitant]
     Active Substance: MELATONIN
  8. IMBRUVICA [Suspect]
     Active Substance: IBRUTINIB
     Indication: CHRONIC LYMPHOCYTIC LEUKAEMIA
     Route: 048
     Dates: start: 20170303, end: 20180412
  9. BENADRYL [Concomitant]
     Active Substance: DIPHENHYDRAMINE HYDROCHLORIDE
  10. STOOL SOFTENER (DOCUSATE) [Concomitant]
     Active Substance: DOCUSATE
  11. IRBESARTAN. [Concomitant]
     Active Substance: IRBESARTAN
  12. MULTIVITAMINS [Concomitant]
     Active Substance: VITAMINS
  13. PROTONIX [Concomitant]
     Active Substance: PANTOPRAZOLE SODIUM
  14. ELIQUIS [Concomitant]
     Active Substance: APIXABAN
  15. IMBRUVICA [Suspect]
     Active Substance: IBRUTINIB
     Indication: CHRONIC LYMPHOCYTIC LEUKAEMIA
     Route: 048
     Dates: start: 20170302
  16. CRANBERRY. [Concomitant]
     Active Substance: CRANBERRY

REACTIONS (1)
  - Cardiac failure acute [Recovered/Resolved]

NARRATIVE: CASE EVENT DATE: 2017
